FAERS Safety Report 7687842-4 (Version None)
Quarter: 2011Q3

REPORT INFORMATION
  Report Type: 
  Country: None (occurrence: None)
  Receive Date: 20110817
  Receipt Date: 20110812
  Transmission Date: 20111222
  Serious: Yes (Death, Hospitalization)
  Sender: FDA-Public Use
  Company Number: JP-ASTELLAS-2011US004835

PATIENT
  Sex: Male

DRUGS (1)
  1. TARCEVA [Suspect]
     Indication: LUNG ADENOCARCINOMA
     Dosage: 150 MG, UID/QD
     Route: 048
     Dates: start: 20110629, end: 20110802

REACTIONS (5)
  - BLOOD VISCOSITY INCREASED [None]
  - ASTHENIA [None]
  - LUNG ADENOCARCINOMA [None]
  - DEHYDRATION [None]
  - DISSEMINATED INTRAVASCULAR COAGULATION [None]
